FAERS Safety Report 25324150 (Version 1)
Quarter: 2025Q2

REPORT INFORMATION
  Report Type: Spontaneous
  Country: US (occurrence: None)
  Receive Date: 20250515
  Receipt Date: 20250515
  Transmission Date: 20250716
  Serious: Yes (Life-Threatening)
  Sender: FDA-CTU
  Company Number: None

PATIENT
  Age: 34 Year
  Sex: Male
  Weight: 105 kg

DRUGS (3)
  1. MYCOPHENOLIC ACID [Suspect]
     Active Substance: MYCOPHENOLIC ACID
     Indication: Prophylaxis against transplant rejection
     Dosage: FREQUENCY : TWICE A DAY;?
     Route: 048
     Dates: start: 20220306, end: 20250501
  2. ENVARSUS XR [Concomitant]
     Active Substance: TACROLIMUS
     Dates: start: 20220306
  3. Sufalmethoxazole-TMP [Concomitant]
     Dates: start: 20220306

REACTIONS (1)
  - Lymphoproliferative disorder [None]

NARRATIVE: CASE EVENT DATE: 20250515
